FAERS Safety Report 4526669-9 (Version None)
Quarter: 2004Q4

REPORT INFORMATION
  Report Type: 
  Country: None (occurrence: None)
  Receive Date: 20041213
  Receipt Date: 20041207
  Transmission Date: 20050328
  Serious: Yes (Hospitalization)
  Sender: FDA-Public Use
  Company Number: CIP04002635

PATIENT
  Age: 81 Year
  Sex: Female

DRUGS (3)
  1. ASACOL [Suspect]
     Dosage: 1200 MG THREE TIMES DAILY, ORAL
     Route: 048
     Dates: start: 20041124, end: 20041203
  2. ZOCOR [Concomitant]
  3. ENALAPRIL [Concomitant]

REACTIONS (4)
  - DEHYDRATION [None]
  - DIARRHOEA [None]
  - FOREIGN BODY TRAUMA [None]
  - STOOL ANALYSIS ABNORMAL [None]
